FAERS Safety Report 8365401-8 (Version None)
Quarter: 2012Q2

REPORT INFORMATION
  Report Type: 
  Country: None (occurrence: None)
  Receive Date: 20120516
  Receipt Date: 20120509
  Transmission Date: 20120825
  Serious: Yes (Other)
  Sender: FDA-Public Use
  Company Number: JP-B.I. PHARMACEUTICALS,INC./RIDGEFIELD-2012-EU-02595GD

PATIENT
  Age: 80 Year
  Sex: Female

DRUGS (1)
  1. DABIGATRAN ETEXILATE [Suspect]

REACTIONS (3)
  - EATING DISORDER [None]
  - RENAL FAILURE ACUTE [None]
  - GASTROINTESTINAL HAEMORRHAGE [None]
